FAERS Safety Report 7809217-7 (Version None)
Quarter: 2011Q4

REPORT INFORMATION
  Report Type: 
  Country: None (occurrence: None)
  Receive Date: 20111012
  Receipt Date: 20111006
  Transmission Date: 20120403
  Serious: Yes (Hospitalization, Other)
  Sender: FDA-Public Use
  Company Number: US-AMGEN-USASP2011036935

PATIENT
  Age: 62 Year
  Sex: Male

DRUGS (4)
  1. ENBREL [Suspect]
     Indication: PSORIATIC ARTHROPATHY
  2. ENBREL [Suspect]
     Indication: RHEUMATOID ARTHRITIS
     Dosage: 50 MG, 2 TIMES/WK
     Route: 058
     Dates: start: 20091001
  3. ENBREL [Suspect]
     Indication: ANKYLOSING SPONDYLITIS
  4. ENBREL [Suspect]
     Indication: PSORIASIS

REACTIONS (6)
  - UMBILICAL HERNIA [None]
  - CHOLECYSTECTOMY [None]
  - BILIARY CYST [None]
  - INFECTED CYST [None]
  - NEPHROLITHIASIS [None]
  - HEPATIC ENZYME INCREASED [None]
